FAERS Safety Report 6217582-X (Version None)
Quarter: 2009Q2

REPORT INFORMATION
  Report Type: 
  Country: None (occurrence: None)
  Receive Date: 20090608
  Receipt Date: 20090313
  Transmission Date: 20091009
  Serious: No
  Sender: FDA-Public Use
  Company Number: A0772778A

PATIENT
  Age: 47 Year
  Sex: Female

DRUGS (5)
  1. WELLBUTRIN XL [Suspect]
     Dosage: 300MG TWICE PER DAY
     Route: 048
     Dates: start: 20050101
  2. LAMICTAL [Concomitant]
  3. BENZTROPINE [Concomitant]
  4. CLONAZEPAM [Concomitant]
  5. CAMPRAL [Concomitant]

REACTIONS (1)
  - ACCIDENTAL OVERDOSE [None]
